FAERS Safety Report 5335909-8 (Version None)
Quarter: 2007Q2

REPORT INFORMATION
  Report Type: 
  Country: None (occurrence: None)
  Receive Date: 20070302
  Receipt Date: 20070115
  Transmission Date: 20071010
  Serious: No
  Sender: FDA-Public Use
  Company Number: PHEH2007US00911

PATIENT
  Age: 50 Year
  Sex: Female

DRUGS (1)
  1. EXJADE [Suspect]
     Indication: SICKLE CELL ANAEMIA
     Dosage: 1500MG, QD, ORAL
     Route: 048
     Dates: start: 20061101, end: 20070114

REACTIONS (1)
  - ALOPECIA [None]
